FAERS Safety Report 6384456-3 (Version None)
Quarter: 2009Q4

REPORT INFORMATION
  Report Type: 
  Country: None (occurrence: None)
  Receive Date: 20091001
  Receipt Date: 20090925
  Transmission Date: 20100525
  Serious: Yes (Death, Life-Threatening, Hospitalization)
  Sender: FDA-Public Use
  Company Number: JP-ROXANE LABORATORIES, INC.-2009-RO-00992RO

PATIENT
  Age: 60 Year
  Sex: Male

DRUGS (4)
  1. LITHIUM CARBONATE [Suspect]
     Indication: MANIA
     Dosage: 400 MG
  2. LITHIUM CARBONATE [Suspect]
     Dosage: 800 MG
  3. ZOTEPINE [Suspect]
     Indication: MANIA
     Dosage: 125 MG
  4. DOXIFLURIDINE [Suspect]
     Indication: ADENOCARCINOMA
     Dosage: 800 MG

REACTIONS (6)
  - ADENOCARCINOMA [None]
  - CACHEXIA [None]
  - DEATH [None]
  - MANIA [None]
  - METASTASES TO PERITONEUM [None]
  - NEUROLEPTIC MALIGNANT SYNDROME [None]
